FAERS Safety Report 12268660 (Version 1)
Quarter: 2016Q2

REPORT INFORMATION
  Report Type: Report from Study
  Country: US (occurrence: US)
  Receive Date: 20160414
  Receipt Date: 20160414
  Transmission Date: 20160815
  Serious: No
  Sender: FDA-Public Use
  Company Number: ADR-2015-00657

PATIENT
  Age: 49 Year
  Sex: Female

DRUGS (10)
  1. GABAPENTIN. [Suspect]
     Active Substance: GABAPENTIN
  2. MORPHINE [Suspect]
     Active Substance: MORPHINE
  3. COMPOUNDED BACLOFEN [Suspect]
     Active Substance: BACLOFEN
     Dosage: 200.72MCG/DAY
     Route: 037
     Dates: end: 20150119
  4. NORTRIPTYLINE [Suspect]
     Active Substance: NORTRIPTYLINE
  5. DILAUDID [Suspect]
     Active Substance: HYDROMORPHONE HYDROCHLORIDE
     Dosage: 1.8081 MG/DAY
     Route: 037
     Dates: start: 20150119
  6. DILAUDID [Suspect]
     Active Substance: HYDROMORPHONE HYDROCHLORIDE
     Dosage: 2.0072MG/DAY
     Route: 037
     Dates: end: 20150119
  7. BUPIVACAINE. [Suspect]
     Active Substance: BUPIVACAINE
     Dosage: 12.043MG/DAY
     Route: 037
     Dates: end: 20150119
  8. OXYCODONE [Suspect]
     Active Substance: OXYCODONE
  9. BUPIVACAINE. [Suspect]
     Active Substance: BUPIVACAINE
     Dosage: 10.848 MG/DAY
     Route: 037
     Dates: start: 20150119
  10. COMPOUNDED BACLOFEN [Suspect]
     Active Substance: BACLOFEN
     Dosage: 180.81 MCG/DAY
     Route: 037
     Dates: start: 20150119

REACTIONS (2)
  - Pain [Recovered/Resolved]
  - Hypoaesthesia [Recovered/Resolved]
